APPROVED DRUG PRODUCT: VINCREX
Active Ingredient: VINCRISTINE SULFATE
Strength: 5MG/VIAL
Dosage Form/Route: INJECTABLE;INJECTION
Application: A070867 | Product #001
Applicant: BRISTOL MYERS SQUIBB
Approved: Jul 12, 1988 | RLD: No | RS: No | Type: DISCN